FAERS Safety Report 7085755-2 (Version None)
Quarter: 2010Q4

REPORT INFORMATION
  Report Type: 
  Country: None (occurrence: None)
  Receive Date: 20101105
  Receipt Date: 20101027
  Transmission Date: 20110411
  Serious: Yes (Hospitalization)
  Sender: FDA-Public Use
  Company Number: US-MYLANLABS-2010S1016752

PATIENT
  Age: 59 Year
  Sex: Female
  Weight: 89.99 kg

DRUGS (9)
  1. SUTENT [Suspect]
     Indication: METASTATIC RENAL CELL CARCINOMA
     Dosage: 4 WEEKS ON AND 2 WEEKS OFF
     Dates: start: 20100730, end: 20100816
  2. SUTENT [Suspect]
     Dosage: 4 WEEKS ON AND 2 WEEKS OFF
     Dates: start: 20100903
  3. LEVOTHYROXINE SODIUM [Suspect]
     Indication: HYPOTHYROIDISM
     Dates: start: 20100114
  4. LEVOTHYROXINE SODIUM [Suspect]
  5. MAXZIDE [Concomitant]
     Dosage: 1/2 OF A 75/50MG TABLET
     Dates: end: 20100816
  6. DOCUSATE SODIUM [Concomitant]
     Dates: start: 20100624
  7. ESZOPICLONE [Concomitant]
     Dates: start: 20100514
  8. ONDANSETRON [Concomitant]
     Dates: start: 20100730
  9. PROCHLORPERAZINE [Concomitant]
     Dates: start: 20100730

REACTIONS (8)
  - ASTHENIA [None]
  - BLOOD THYROID STIMULATING HORMONE DECREASED [None]
  - DECREASED APPETITE [None]
  - DIZZINESS [None]
  - FATIGUE [None]
  - HYPOTENSION [None]
  - PALPITATIONS [None]
  - STASIS SYNDROME [None]
